FAERS Safety Report 14936647 (Version 1)
Quarter: 2018Q2

REPORT INFORMATION
  Report Type: Report from Study
  Country: CN (occurrence: CN)
  Receive Date: 20180525
  Receipt Date: 20180525
  Transmission Date: 20180711
  Serious: Yes (Other)
  Sender: FDA-Public Use
  Company Number: CN-ROCHE-2127619

PATIENT

DRUGS (19)
  1. BEVACIZUMAB. [Suspect]
     Active Substance: BEVACIZUMAB
     Indication: CERVIX CARCINOMA
  2. ENDOSTATIN [Suspect]
     Active Substance: ENDOSTATIN
     Indication: GASTRIC CANCER
  3. ENDOSTATIN [Suspect]
     Active Substance: ENDOSTATIN
     Indication: PANCREATIC CARCINOMA
  4. BEVACIZUMAB. [Suspect]
     Active Substance: BEVACIZUMAB
     Indication: MALIGNANT ASCITES
     Route: 065
  5. ENDOSTATIN [Suspect]
     Active Substance: ENDOSTATIN
     Indication: GASTROINTESTINAL CARCINOMA
  6. ENDOSTATIN [Suspect]
     Active Substance: ENDOSTATIN
     Indication: OVARIAN CANCER
  7. BEVACIZUMAB. [Suspect]
     Active Substance: BEVACIZUMAB
     Indication: GASTROINTESTINAL CARCINOMA
  8. BEVACIZUMAB. [Suspect]
     Active Substance: BEVACIZUMAB
     Indication: GASTRIC CANCER
  9. ENDOSTATIN [Suspect]
     Active Substance: ENDOSTATIN
     Indication: CHOLANGIOCARCINOMA
  10. BEVACIZUMAB. [Suspect]
     Active Substance: BEVACIZUMAB
     Indication: OVARIAN CANCER
  11. BEVACIZUMAB. [Suspect]
     Active Substance: BEVACIZUMAB
     Indication: PANCREATIC CARCINOMA
  12. ENDOSTATIN [Suspect]
     Active Substance: ENDOSTATIN
     Indication: MALIGNANT ASCITES
     Route: 065
  13. ENDOSTATIN [Suspect]
     Active Substance: ENDOSTATIN
     Indication: ENDOMETRIAL CANCER
  14. ENDOSTATIN [Suspect]
     Active Substance: ENDOSTATIN
     Indication: CERVIX CARCINOMA
  15. BEVACIZUMAB. [Suspect]
     Active Substance: BEVACIZUMAB
     Indication: GASTROINTESTINAL CARCINOMA
  16. BEVACIZUMAB. [Suspect]
     Active Substance: BEVACIZUMAB
     Indication: ENDOMETRIAL CANCER
  17. BEVACIZUMAB. [Suspect]
     Active Substance: BEVACIZUMAB
     Indication: CHOLANGIOCARCINOMA
  18. ENDOSTATIN [Suspect]
     Active Substance: ENDOSTATIN
     Indication: COLORECTAL CANCER
  19. ENDOSTATIN [Suspect]
     Active Substance: ENDOSTATIN
     Indication: GASTROINTESTINAL CARCINOMA

REACTIONS (4)
  - Bone marrow failure [Unknown]
  - Nausea [Unknown]
  - Intestinal obstruction [Unknown]
  - Vomiting [Unknown]
